FAERS Safety Report 5567248-4 (Version None)
Quarter: 2007Q4

REPORT INFORMATION
  Report Type: 
  Country: None (occurrence: None)
  Receive Date: 20071219
  Receipt Date: 20071214
  Transmission Date: 20080405
  Serious: Yes (Other)
  Sender: FDA-Public Use
  Company Number: JP-BOEHRINGER INGELHEIM PHARMACEUTICALS, INC.-2007-BP-26195NB

PATIENT
  Sex: Female
  Weight: 39 kg

DRUGS (5)
  1. MICARDIS [Suspect]
     Indication: HYPERTENSION
     Route: 048
     Dates: start: 20061003, end: 20070927
  2. AMLODIN [Concomitant]
     Indication: HYPERTENSION
     Route: 048
     Dates: start: 20060510
  3. MYSLEE [Concomitant]
     Indication: INSOMNIA
     Route: 048
     Dates: start: 20060510
  4. CEPHADOL [Concomitant]
     Indication: DIZZINESS
     Route: 048
     Dates: start: 20070514
  5. SELBEX [Concomitant]
     Indication: GASTRITIS
     Route: 048
     Dates: start: 20070523

REACTIONS (1)
  - SPINAL CORD NEOPLASM [None]
